FAERS Safety Report 4512010-4 (Version None)
Quarter: 2004Q4

REPORT INFORMATION
  Report Type: 
  Country: None (occurrence: None)
  Receive Date: 20041123
  Receipt Date: 20041109
  Transmission Date: 20050328
  Serious: Yes (Hospitalization)
  Sender: FDA-Public Use
  Company Number: K200201565

PATIENT
  Age: 50 Year
  Sex: Female
  Weight: 61.7 kg

DRUGS (14)
  1. LEVOXYL [Suspect]
     Indication: HYPOTHYROIDISM
     Dosage: 100 MCG, QID, ORAL
     Route: 048
     Dates: start: 19930101
  2. XOPENEX [Suspect]
     Indication: ASTHMA
     Dates: start: 20020101
  3. PERIMINE (PERILLA SEED EXTRACT) 100MG [Suspect]
     Dosage: 100 MG, QD
  4. THYROID TAB [Concomitant]
  5. FIORNAL (ACETYLSALICYLIC ACID, BUTALBITAL, CAFFEINE) [Concomitant]
  6. ASPIRIN [Concomitant]
  7. VALERIAN ROOT (VALERIAN ROOT) [Concomitant]
  8. KENALOG [Concomitant]
  9. ALBUTEROL (SALBUTAMOL) INHALER [Concomitant]
  10. AMINOPHYLLINE [Concomitant]
  11. VITAMIN B12 [Concomitant]
  12. BENADRYL   PFIZER  WARNER-LAMBERT  (DIPHENHYDRAMINE HYDROCHLORIDE) [Concomitant]
  13. CARDIZEM CD [Concomitant]
  14. CALCIUM CIT/MAG ASPART/BOV PARATHYROID/SUPRAOXIDE DISMUTASE /CATALASE [Concomitant]

REACTIONS (9)
  - ATRIAL FIBRILLATION [None]
  - BLOOD THYROID STIMULATING HORMONE INCREASED [None]
  - DRUG LEVEL ABOVE THERAPEUTIC [None]
  - HAEMATOCRIT INCREASED [None]
  - HAEMOGLOBIN INCREASED [None]
  - LUNG DISORDER [None]
  - RED BLOOD CELL COUNT INCREASED [None]
  - THYROTOXIC CRISIS [None]
  - WEIGHT INCREASED [None]
